FAERS Safety Report 5746535-0 (Version None)
Quarter: 2008Q2

REPORT INFORMATION
  Report Type: 
  Country: None (occurrence: None)
  Receive Date: 20080522
  Receipt Date: 20071008
  Transmission Date: 20081010
  Serious: No
  Sender: FDA-Public Use
  Company Number: US-BRISTOL-MYERS SQUIBB COMPANY-13933692

PATIENT
  Sex: Female

DRUGS (2)
  1. CYTOXAN [Suspect]
  2. LANTUS [Suspect]

REACTIONS (4)
  - ARTHRALGIA [None]
  - HYPERHIDROSIS [None]
  - NERVOUSNESS [None]
  - PYREXIA [None]
